FAERS Safety Report 7546665-7 (Version None)
Quarter: 2011Q2

REPORT INFORMATION
  Report Type: 
  Country: None (occurrence: None)
  Receive Date: 20110607
  Receipt Date: 20110523
  Transmission Date: 20111010
  Serious: Yes (Life-Threatening, Hospitalization, Other)
  Sender: FDA-Public Use
  Company Number: 2011MA002634

PATIENT
  Age: 75 Year
  Sex: Male

DRUGS (8)
  1. AMLODIPINE [Suspect]
     Indication: OVERDOSE
     Dosage: 300 MG; 1X
  2. ISOSORBIDE MONONITRATE [Suspect]
     Indication: OVERDOSE
     Dosage: 6000 MG; 1X
  3. DIGOXIN [Concomitant]
  4. ATORVASTATIN CALCIUM [Concomitant]
  5. ACENOCOUMAROL [Concomitant]
  6. PERINDOPRIL ERBUMINE [Concomitant]
  7. SOTALOL HCL [Concomitant]
  8. FUROSEMIDE [Concomitant]

REACTIONS (10)
  - CARDIOGENIC SHOCK [None]
  - DRUG INTERACTION [None]
  - TOXICITY TO VARIOUS AGENTS [None]
  - MULTIPLE DRUG OVERDOSE [None]
  - CONTINUOUS HAEMODIAFILTRATION [None]
  - VENTRICULAR ARRHYTHMIA [None]
  - RENAL FAILURE [None]
  - ELECTROCARDIOGRAM QRS COMPLEX PROLONGED [None]
  - DISORIENTATION [None]
  - ELECTROCARDIOGRAM QT PROLONGED [None]
